FAERS Safety Report 24066728 (Version 1)
Quarter: 2024Q3

REPORT INFORMATION
  Report Type: Spontaneous
  Country: US (occurrence: None)
  Receive Date: 20240709
  Receipt Date: 20240709
  Transmission Date: 20241017
  Serious: No
  Sender: Public
  Company Number: None

PATIENT
  Sex: Male

DRUGS (2)
  1. TREMFYA [Suspect]
     Active Substance: GUSELKUMAB
     Indication: Psoriasis
     Dosage: OTHER FREQUENCY : EVERY 8 WEEKS;?
     Route: 058
     Dates: start: 202406
  2. COSENTYX [Concomitant]

REACTIONS (5)
  - Suicidal ideation [None]
  - Pain [None]
  - Gastrointestinal disorder [None]
  - Inappropriate schedule of product administration [None]
  - Pruritus [None]
